FAERS Safety Report 7803825-5 (Version None)
Quarter: 2011Q4

REPORT INFORMATION
  Report Type: 
  Country: None (occurrence: None)
  Receive Date: 20111010
  Receipt Date: 20111006
  Transmission Date: 20120403
  Serious: No
  Sender: FDA-Public Use
  Company Number: PHEH2011US06241

PATIENT
  Sex: Male
  Weight: 95.238 kg

DRUGS (10)
  1. TASIGNA [Suspect]
     Indication: CHRONIC MYELOID LEUKAEMIA
     Dosage: 300 MG, BID
     Route: 048
     Dates: start: 20101001
  2. VASOTEC [Concomitant]
  3. ANDROGEL [Concomitant]
  4. LEVAQUIN [Concomitant]
  5. KLOR-CON [Concomitant]
  6. FENOFIBRATE [Concomitant]
  7. JANUVIA [Concomitant]
  8. CRESTOR [Concomitant]
  9. GLIPIZIDE [Concomitant]
  10. COQ10 [Concomitant]

REACTIONS (1)
  - INFLUENZA LIKE ILLNESS [None]
